FAERS Safety Report 5933871-8 (Version None)
Quarter: 2008Q4

REPORT INFORMATION
  Report Type: 
  Country: None (occurrence: None)
  Receive Date: 20081029
  Receipt Date: 20080930
  Transmission Date: 20090506
  Serious: No
  Sender: FDA-Public Use
  Company Number: US-BAYER-200810247BCC

PATIENT
  Age: 39 Year
  Sex: Female
  Weight: 98 kg

DRUGS (4)
  1. ALEVE (CAPLET) [Suspect]
     Indication: OEDEMA PERIPHERAL
     Dosage: UNIT DOSE: 220 MG
     Route: 048
     Dates: start: 20071205, end: 20080101
  2. ALEVE (CAPLET) [Suspect]
     Route: 048
     Dates: start: 20080116
  3. EFFEXOR XR [Concomitant]
     Route: 048
     Dates: start: 20070901
  4. LOVASTATIN [Concomitant]

REACTIONS (2)
  - BLOOD PRESSURE INCREASED [None]
  - HEART RATE INCREASED [None]
